FAERS Safety Report 17790199 (Version 1)
Quarter: 2020Q2

REPORT INFORMATION
  Report Type: Spontaneous
  Country: FR (occurrence: FR)
  Receive Date: 20200515
  Receipt Date: 20200515
  Transmission Date: 20200714
  Serious: Yes (Hospitalization)
  Sender: FDA-Public Use
  Company Number: FR-AMGEN-FRANI2020063202

PATIENT
  Age: 71 Year
  Sex: Male

DRUGS (3)
  1. PEGFILGRASTIM [Suspect]
     Active Substance: PEGFILGRASTIM
     Dosage: 6 MILLIGRAM, QD, 1 DF, DAILY (1 DOSAGE FORM TOTAL)
     Route: 058
     Dates: start: 20200422, end: 20200422
  2. PEGFILGRASTIM [Suspect]
     Active Substance: PEGFILGRASTIM
     Indication: COLONY STIMULATING FACTOR THERAPY
     Dosage: 6 MILLIGRAM, QD, 1 DF, DAILY (1 DOSAGE FORM TOTAL)
     Route: 058
     Dates: start: 20200318, end: 20200318
  3. PEGFILGRASTIM [Suspect]
     Active Substance: PEGFILGRASTIM
     Dosage: 6 MILLIGRAM, QD, 1 DF, DAILY (1 DOSAGE FORM TOTAL)
     Route: 058
     Dates: start: 20200401, end: 20200401

REACTIONS (7)
  - Hypoglycaemia [Unknown]
  - Diarrhoea [Unknown]
  - Nausea [Unknown]
  - Injection site pain [Unknown]
  - Vomiting [Unknown]
  - Asthenia [Unknown]
  - Decreased appetite [Unknown]

NARRATIVE: CASE EVENT DATE: 20200318
